FAERS Safety Report 11249829 (Version 1)
Quarter: 2015Q3

REPORT INFORMATION
  Report Type: Spontaneous
  Country: US (occurrence: US)
  Receive Date: 20150708
  Receipt Date: 20150708
  Transmission Date: 20151125
  Serious: Yes (Other)
  Sender: FDA-Public Use
  Company Number: US-SA-2015SA088411

PATIENT
  Sex: Female

DRUGS (1)
  1. GOLD BOND ULTIMATE ROUGH AND BUMPY SKIN CREAM [Suspect]
     Active Substance: COSMETICS
     Indication: KERATOSIS PILARIS
     Route: 065
     Dates: end: 2015

REACTIONS (8)
  - Keratosis pilaris [Unknown]
  - Infection [Unknown]
  - Condition aggravated [Unknown]
  - Furuncle [Not Recovered/Not Resolved]
  - Staphylococcal infection [Not Recovered/Not Resolved]
  - Drug ineffective [Unknown]
  - Scar [Not Recovered/Not Resolved]
  - Scab [Unknown]

NARRATIVE: CASE EVENT DATE: 2015
